FAERS Safety Report 10542213 (Version 1)
Quarter: 2014Q4

REPORT INFORMATION
  Report Type: Spontaneous
  Country: US (occurrence: None)
  Receive Date: 20141010
  Receipt Date: 20141010
  Transmission Date: 20150529
  Serious: No
  Sender: FDA-Public Use
  Company Number: 163-POMAL-14064773

PATIENT
  Age: 82 Year
  Sex: Male

DRUGS (9)
  1. POMALYST [Suspect]
     Active Substance: POMALIDOMIDE
     Indication: PLASMA CELL MYELOMA
     Dosage: 2 MG, 21 IN 21 D, PO
     Route: 048
     Dates: start: 201311
  2. NITROGLYCERIN ( GLYCERYL TRINITRATE) [Concomitant]
  3. NEURONTIN ( GABAPENTIN) [Concomitant]
  4. ATORVASTATIN CALCIUM. [Concomitant]
     Active Substance: ATORVASTATIN CALCIUM
  5. ISOSORBIDE DINITRATE. [Concomitant]
     Active Substance: ISOSORBIDE DINITRATE
  6. LOSARTAN POTASSIUM. [Concomitant]
     Active Substance: LOSARTAN POTASSIUM
  7. PREDNISONE. [Concomitant]
     Active Substance: PREDNISONE
  8. TRAMADOL-ACETAMINOPHEN ( ULTRACET) [Concomitant]
  9. FAMOTIDINE. [Concomitant]
     Active Substance: FAMOTIDINE

REACTIONS (2)
  - Pain in extremity [None]
  - Hypoaesthesia [None]
